FAERS Safety Report 5331183-7 (Version None)
Quarter: 2007Q2

REPORT INFORMATION
  Report Type: 
  Country: None (occurrence: None)
  Receive Date: 20070227
  Receipt Date: 20060103
  Transmission Date: 20071010
  Serious: Yes (Other)
  Sender: FDA-Public Use
  Company Number: 424347

PATIENT
  Sex: Male

DRUGS (3)
  1. ACCUTANE [Suspect]
     Indication: ACNE CYSTIC
     Dosage: 40 MG 2 PER DAY ORAL
     Route: 048
     Dates: start: 20050603, end: 20050924
  2. ORTHO EVRA [Concomitant]
  3. ORTHO TRI-CYCLEN LO [Concomitant]

REACTIONS (2)
  - NO ADVERSE EFFECT [None]
  - NORMAL NEWBORN [None]
